FAERS Safety Report 23706632 (Version 5)
Quarter: 2024Q2

REPORT INFORMATION
  Report Type: Report from Study
  Country: US (occurrence: US)
  Receive Date: 20240404
  Receipt Date: 20240628
  Transmission Date: 20240716
  Serious: No
  Sender: FDA-Public Use
  Company Number: US-ALXN-202403USA002026US

PATIENT
  Sex: Male

DRUGS (2)
  1. STRENSIQ [Suspect]
     Active Substance: ASFOTASE ALFA
     Indication: Product used for unknown indication
     Dosage: UNK UNK, SIX TIMES/WEEK
     Route: 065
  2. STRENSIQ [Suspect]
     Active Substance: ASFOTASE ALFA
     Dosage: UNK, UNK, 4 TIMES PER WEEK
     Route: 065

REACTIONS (7)
  - Pain in extremity [Not Recovered/Not Resolved]
  - Injection site bruising [Unknown]
  - Injection site atrophy [Unknown]
  - Injection site mass [Unknown]
  - Injection site pain [Unknown]
  - Blood test abnormal [Unknown]
  - Injection site scar [Not Recovered/Not Resolved]
